FAERS Safety Report 4285394-2 (Version None)
Quarter: 2004Q1

REPORT INFORMATION
  Report Type: 
  Country: None (occurrence: None)
  Receive Date: 20040203
  Receipt Date: 20040203
  Transmission Date: 20041129
  Serious: Yes (Other)
  Sender: FDA-Public Use
  Company Number: None

PATIENT
  Age: 27 Year
  Sex: Female
  Weight: 47.6277 kg

DRUGS (1)
  1. PAXIL [Suspect]
     Indication: PANIC ATTACK
     Dosage: 25 MG X 1 DAILY ORAL
     Route: 048
     Dates: start: 20040803, end: 20040101

REACTIONS (9)
  - DIPLOPIA [None]
  - DRUG WITHDRAWAL SYNDROME [None]
  - FEELING HOT AND COLD [None]
  - HYPOAESTHESIA [None]
  - INFLUENZA [None]
  - IRRITABILITY [None]
  - NASOPHARYNGITIS [None]
  - NIGHTMARE [None]
  - PALPITATIONS [None]
